FAERS Safety Report 4686647-6 (Version None)
Quarter: 2005Q2

REPORT INFORMATION
  Report Type: 
  Country: None (occurrence: None)
  Receive Date: 20050606
  Receipt Date: 20050523
  Transmission Date: 20051028
  Serious: Yes (Hospitalization)
  Sender: FDA-Public Use
  Company Number: US_0504115273

PATIENT
  Age: 33 Year
  Sex: Male
  Weight: 68.9467 kg

DRUGS (9)
  1. FORTEO [Suspect]
     Indication: OSTEOPOROSIS
     Dosage: 20 UG/1 DAY
     Dates: start: 20050223
  2. ACETYLSALICYLIC ACID SRT [Concomitant]
  3. CALCIUM CARBONATE [Concomitant]
  4. COMBIVENT [Concomitant]
  5. DOMPERIDONE [Concomitant]
  6. OMEPRAZOL (OMEPRAZOLE RATIOPHARM) [Concomitant]
  7. PREDNISON (PREDNISONE) [Concomitant]
  8. SERETIDE [Concomitant]
  9. VALPROATE SODIUM [Concomitant]

REACTIONS (2)
  - PAIN IN EXTREMITY [None]
  - VENTRICULAR ARRHYTHMIA [None]
